FAERS Safety Report 7441760-5 (Version None)
Quarter: 2011Q2

REPORT INFORMATION
  Report Type: 
  Country: None (occurrence: None)
  Receive Date: 20110428
  Receipt Date: 20110420
  Transmission Date: 20111010
  Serious: Yes (Death)
  Sender: FDA-Public Use
  Company Number: US-BRISTOL-MYERS SQUIBB COMPANY-15687833

PATIENT
  Age: 77 Year
  Sex: Female

DRUGS (3)
  1. ORENCIA [Suspect]
     Indication: RHEUMATOID ARTHRITIS
     Dosage: INTERRUPTED:MAR2010 RESTARTED:AUG10
     Dates: start: 20080101
  2. METHOTREXATE [Suspect]
     Dates: start: 20080101
  3. PREDNISONE [Suspect]
     Dates: start: 20080101

REACTIONS (1)
  - LUNG CANCER METASTATIC [None]
